FAERS Safety Report 9425365 (Version 6)
Quarter: 2014Q2

REPORT INFORMATION
  Report Type: Spontaneous
  Country: FR (occurrence: None)
  Receive Date: 20130724
  Receipt Date: 20140515
  Transmission Date: 20141212
  Serious: Yes (Other)
  Sender: FDA-Public Use
  Company Number: JPI-P-033769

PATIENT
  Age: 31 Year
  Sex: Female

DRUGS (3)
  1. XYREM [Suspect]
     Indication: HYPERSOMNIA
     Route: 048
     Dates: start: 2013, end: 2013
  2. DESOGESTREL [Concomitant]
  3. ESOMEPRAZOLE MAGNESIUM [Concomitant]

REACTIONS (12)
  - Gastric banding reversal [None]
  - Dizziness [None]
  - Tremor [None]
  - Musculoskeletal pain [None]
  - Middle insomnia [None]
  - Pain in extremity [None]
  - Nightmare [None]
  - Off label use [None]
  - Sleep disorder [None]
  - Middle insomnia [None]
  - Pain in extremity [None]
  - Musculoskeletal pain [None]
